FAERS Safety Report 6247177-3 (Version None)
Quarter: 2009Q2

REPORT INFORMATION
  Report Type: 
  Country: None (occurrence: None)
  Receive Date: 20090624
  Receipt Date: 20090624
  Transmission Date: 20091009
  Serious: Yes (Other)
  Sender: FDA-Public Use
  Company Number: None

PATIENT
  Age: 30 Year
  Sex: Female
  Weight: 74.8435 kg

DRUGS (1)
  1. YAZ [Suspect]
     Indication: CONTRACEPTION
     Dosage: 1 PILL ONCE A DAY PO
     Route: 048
     Dates: start: 20080219, end: 20080819

REACTIONS (8)
  - ANXIETY [None]
  - FEELING ABNORMAL [None]
  - FORMICATION [None]
  - HORMONE LEVEL ABNORMAL [None]
  - HOT FLUSH [None]
  - NIGHT SWEATS [None]
  - PALPITATIONS [None]
  - PANIC ATTACK [None]
